FAERS Safety Report 8193449-5 (Version None)
Quarter: 2012Q1

REPORT INFORMATION
  Report Type: 
  Country: None (occurrence: None)
  Receive Date: 20120308
  Receipt Date: 20120228
  Transmission Date: 20120608
  Serious: Yes (Death, Other)
  Sender: FDA-Public Use
  Company Number: DE-AMGEN-DEUSP2012013162

PATIENT
  Sex: Male

DRUGS (8)
  1. ANTILYMPHOCYTE IMMUNOGLOBULIN (RABBIT) [Concomitant]
     Dosage: 10 MG/KG, UNK
  2. CYCLOPHOSPHAMIDE [Suspect]
     Indication: SYSTEMIC SCLEROSIS
     Dosage: 2 G/M2, QD
  3. ACYCLOVIR [Concomitant]
     Indication: INFECTION PROPHYLAXIS
     Dosage: UNK
  4. LEVOFLOXACIN [Concomitant]
     Indication: INFECTION PROPHYLAXIS
     Dosage: UNK
  5. CYCLOPHOSPHAMIDE [Suspect]
     Dosage: 50 MG/KG, UNK
  6. FLUCONAZOLE [Concomitant]
     Indication: INFECTION PROPHYLAXIS
     Dosage: UNK
  7. TRIMETHOPRIM + SULFAMETHOXAZOLE [Concomitant]
     Indication: INFECTION PROPHYLAXIS
     Dosage: UNK
  8. NEUPOGEN [Suspect]
     Indication: PERIPHERAL BLOOD STEM CELL APHERESIS
     Dosage: 10 MUG/KG, QD

REACTIONS (4)
  - PULMONARY ALVEOLAR HAEMORRHAGE [None]
  - RESPIRATORY FAILURE [None]
  - LUNG INFILTRATION [None]
  - LEUKOSTASIS [None]
